FAERS Safety Report 10432526 (Version 1)
Quarter: 2014Q3

REPORT INFORMATION
  Report Type: Spontaneous
  Country: US (occurrence: US)
  Receive Date: 20140905
  Receipt Date: 20140905
  Transmission Date: 20150326
  Serious: No
  Sender: FDA-Public Use
  Company Number: US-MYLAN-2014S1013576

PATIENT
  Age: 48 Year
  Sex: Female

DRUGS (1)
  1. SILDENAFIL [Suspect]
     Active Substance: SILDENAFIL
     Indication: PULMONARY ARTERIAL HYPERTENSION
     Dosage: 20 MG,TID
     Dates: start: 20130918, end: 20140501

REACTIONS (1)
  - Oedema peripheral [Recovered/Resolved]

NARRATIVE: CASE EVENT DATE: 20131201
